FAERS Safety Report 5136622-2 (Version None)
Quarter: 2006Q4

REPORT INFORMATION
  Report Type: 
  Country: None (occurrence: None)
  Receive Date: 20061023
  Receipt Date: 20061016
  Transmission Date: 20070319
  Serious: Yes (Death, Hospitalization)
  Sender: FDA-Public Use
  Company Number: 163-21880-06070573

PATIENT
  Age: 69 Year
  Sex: Male

DRUGS (5)
  1. REVLIMID [Suspect]
     Indication: MYELODYSPLASTIC SYNDROME
     Dosage: 10 MG, DAILY FOR 28 DAYS, ORAL
     Route: 048
     Dates: start: 20060401, end: 20060711
  2. EXJADE (DEFERASIROX) (2000 MILLIGRAM) [Concomitant]
  3. LEXAPRO [Concomitant]
  4. PROTONIX [Concomitant]
  5. ALBUTEROL (SALBUTAMOL) (INHALANT) [Concomitant]

REACTIONS (16)
  - ATRIAL FIBRILLATION [None]
  - BACTERIAL INFECTION [None]
  - DEHYDRATION [None]
  - DISSEMINATED INTRAVASCULAR COAGULATION [None]
  - HYPONATRAEMIA [None]
  - HYPOVOLAEMIA [None]
  - IRON OVERLOAD [None]
  - LUNG INFILTRATION [None]
  - NASOPHARYNGITIS [None]
  - PANCYTOPENIA [None]
  - PNEUMONIA [None]
  - RENAL FAILURE [None]
  - SEPTIC SHOCK [None]
  - SUDDEN DEATH [None]
  - TACHYARRHYTHMIA [None]
  - TROPONIN INCREASED [None]
